FAERS Safety Report 7447620-8 (Version None)
Quarter: 2011Q2

REPORT INFORMATION
  Report Type: 
  Country: None (occurrence: None)
  Receive Date: 20110429
  Receipt Date: 20110124
  Transmission Date: 20111010
  Serious: No
  Sender: FDA-Public Use
  Company Number: US-ASTRAZENECA-2011SE02970

PATIENT
  Age: 59 Year
  Sex: Female

DRUGS (3)
  1. NEXIUM [Suspect]
     Route: 048
  2. PROTONIX [Concomitant]
  3. PRILOSEC OTC [Suspect]
     Route: 048

REACTIONS (5)
  - BRONCHITIS [None]
  - ABDOMINAL PAIN UPPER [None]
  - MALAISE [None]
  - DRUG DOSE OMISSION [None]
  - DRUG INEFFECTIVE [None]
